FAERS Safety Report 17598269 (Version 1)
Quarter: 2020Q1

REPORT INFORMATION
  Report Type: Spontaneous
  Country: US (occurrence: US)
  Receive Date: 20200328
  Receipt Date: 20200328
  Transmission Date: 20200409
  Serious: Yes (Disabling)
  Sender: FDA-Public Use
  Company Number: None

PATIENT
  Age: 78 Year
  Sex: Female
  Weight: 78.75 kg

DRUGS (15)
  1. MULTI VIT [Concomitant]
     Active Substance: VITAMINS
  2. PROBIOTICS [Concomitant]
     Active Substance: PROBIOTICS NOS
  3. DULOXETINE. [Concomitant]
     Active Substance: DULOXETINE
  4. COQ 10 [Concomitant]
     Active Substance: UBIDECARENONE
  5. BIOTIN [Concomitant]
     Active Substance: BIOTIN
  6. MAGNESIUM [Concomitant]
     Active Substance: MAGNESIUM
  7. LOSARTAN. [Concomitant]
     Active Substance: LOSARTAN
  8. ROSUVASTATIN. [Concomitant]
     Active Substance: ROSUVASTATIN
  9. B VITAMIN [Concomitant]
  10. LEVOFLOXACIN 500 MG [Suspect]
     Active Substance: LEVOFLOXACIN
     Indication: URINARY TRACT INFECTION
     Dosage: ?          QUANTITY:1 TABLET(S);?
     Route: 048
     Dates: start: 20200312, end: 20200321
  11. ELIQUIS [Concomitant]
     Active Substance: APIXABAN
  12. OMEPRAZOLE. [Concomitant]
     Active Substance: OMEPRAZOLE
  13. CEFUROXIME. [Suspect]
     Active Substance: CEFUROXIME
  14. VITAMIN D3 [Concomitant]
     Active Substance: CHOLECALCIFEROL
  15. LYRICA [Concomitant]
     Active Substance: PREGABALIN

REACTIONS (4)
  - Arthralgia [None]
  - Myalgia [None]
  - Diarrhoea [None]
  - Asthenia [None]

NARRATIVE: CASE EVENT DATE: 20200318
